FAERS Safety Report 8474592-X (Version None)
Quarter: 2012Q2

REPORT INFORMATION
  Report Type: 
  Country: None (occurrence: None)
  Receive Date: 20120628
  Receipt Date: 20120622
  Transmission Date: 20120825
  Serious: Yes (Other)
  Sender: FDA-Public Use
  Company Number: PHHY2012BR054056

PATIENT
  Age: 20 Month
  Sex: Male
  Weight: 8 kg

DRUGS (2)
  1. MYCOPHENOLATE MOFETIL [Suspect]
     Indication: LIVER TRANSPLANT
  2. CORTICOSTEROIDS [Concomitant]
     Indication: LIVER TRANSPLANT
     Dosage: UNK

REACTIONS (5)
  - ASCITES [None]
  - PLEURAL EFFUSION [None]
  - HEPATIC FIBROSIS [None]
  - ANASTOMOTIC COMPLICATION [None]
  - HEPATIC VEIN OCCLUSION [None]
